FAERS Safety Report 4444712-2 (Version None)
Quarter: 2004Q3

REPORT INFORMATION
  Report Type: 
  Country: None (occurrence: None)
  Receive Date: 20040903
  Receipt Date: 20040826
  Transmission Date: 20050211
  Serious: Yes (Disabling, Other)
  Sender: FDA-Public Use
  Company Number: HQWYE379518AUG04

PATIENT
  Age: 50 Year
  Sex: Female
  Weight: 54 kg

DRUGS (5)
  1. MYAMBUTOL [Suspect]
     Indication: TUBERCULOSIS
     Dosage: 1200 MG DAILY 047
  2. ISONIAZID [Concomitant]
  3. RIFAMPICIN [Concomitant]
  4. PYRIDOXINE HCL TAB [Concomitant]
  5. PYRAZINAMIDE [Concomitant]

REACTIONS (8)
  - COLOUR BLINDNESS ACQUIRED [None]
  - HYPOAESTHESIA [None]
  - MEDICATION ERROR [None]
  - NEUROPATHY PERIPHERAL [None]
  - OPTIC ATROPHY [None]
  - OPTIC NEURITIS [None]
  - SCOTOMA [None]
  - VISION BLURRED [None]
